FAERS Safety Report 25527240 (Version 1)
Quarter: 2025Q3

REPORT INFORMATION
  Report Type: Spontaneous
  Country: CN (occurrence: CN)
  Receive Date: 20250708
  Receipt Date: 20250708
  Transmission Date: 20251021
  Serious: Yes (Hospitalization, Other)
  Sender: JOHNSON AND JOHNSON
  Company Number: CN-JNJFOC-20250702164

PATIENT
  Age: 73 Year
  Sex: Female

DRUGS (1)
  1. DARZALEX [Suspect]
     Active Substance: DARATUMUMAB
     Indication: Plasma cell myeloma
     Route: 041
     Dates: start: 20250627, end: 20250627

REACTIONS (3)
  - Hypersensitivity [Recovering/Resolving]
  - Erythema [Recovering/Resolving]
  - Infusion related reaction [Unknown]

NARRATIVE: CASE EVENT DATE: 20250627
